FAERS Safety Report 9411577 (Version 2)
Quarter: 2013Q3

REPORT INFORMATION
  Report Type: Spontaneous
  Country: CN (occurrence: CN)
  Receive Date: 20130722
  Receipt Date: 20130822
  Transmission Date: 20140515
  Serious: Yes (Other)
  Sender: FDA-Public Use
  Company Number: CN-ROCHE-1249816

PATIENT
  Age: 50 Year
  Sex: Male
  Weight: 72.5 kg

DRUGS (1)
  1. ROCALTROL [Suspect]
     Indication: HYPOPARATHYROIDISM
     Route: 048
     Dates: start: 201209

REACTIONS (3)
  - Blood calcium decreased [Recovering/Resolving]
  - Suspected counterfeit product [Unknown]
  - Drug ineffective [Unknown]
